FAERS Safety Report 10945925 (Version 3)
Quarter: 2015Q4

REPORT INFORMATION
  Report Type: Spontaneous
  Country: US (occurrence: US)
  Receive Date: 20150323
  Receipt Date: 20151014
  Transmission Date: 20160304
  Serious: Yes (Hospitalization, Other)
  Sender: FDA-Public Use
  Company Number: US-BAYER-2015-045164

PATIENT
  Age: 22 Year
  Sex: Female
  Weight: 74.83 kg

DRUGS (1)
  1. MIRENA [Suspect]
     Active Substance: LEVONORGESTREL
     Indication: CONTRACEPTION
     Dosage: 20 MCG/24HR, CONT
     Route: 015
     Dates: start: 20100804, end: 20120618

REACTIONS (6)
  - Pain [None]
  - Injury [None]
  - Uterine perforation [None]
  - Ectopic pregnancy with contraceptive device [None]
  - Drug ineffective [None]
  - Device difficult to use [None]

NARRATIVE: CASE EVENT DATE: 201203
